FAERS Safety Report 8785764 (Version 2)
Quarter: 2012Q4

REPORT INFORMATION
  Report Type: 
  Country: JP (occurrence: JP)
  Receive Date: 20120914
  Receipt Date: 20121124
  Transmission Date: 20130627
  Serious: Yes (Death, Other)
  Sender: FDA-Public Use
  Company Number: JP-SANOFI-AVENTIS-2012SA065757

PATIENT
  Age: 44 Year
  Sex: Male

DRUGS (6)
  1. OXALIPLATIN [Suspect]
     Indication: COLON CANCER
     Dosage: I.V. infusion solution
     Route: 041
  2. CALCIUM LEVOFOLINATE [Concomitant]
     Indication: COLON CANCER
     Dosage: bolus
  3. CALCIUM LEVOFOLINATE [Concomitant]
     Indication: COLON CANCER
     Dosage: continuous infusion
  4. 5-FU [Concomitant]
     Indication: COLON CANCER
     Dosage: bolus
  5. 5-FU [Concomitant]
     Indication: COLON CANCER
     Dosage: continuous infusion
  6. AVASTIN [Concomitant]
     Indication: COLON CANCER

REACTIONS (4)
  - Cerebral infarction [Fatal]
  - White blood cell count decreased [Recovered/Resolved]
  - Platelet count decreased [Recovered/Resolved]
  - Malaise [Unknown]
